FAERS Safety Report 7816591-4 (Version None)
Quarter: 2011Q4

REPORT INFORMATION
  Report Type: 
  Country: None (occurrence: None)
  Receive Date: 20111017
  Receipt Date: 20111005
  Transmission Date: 20120403
  Serious: Yes (Hospitalization)
  Sender: FDA-Public Use
  Company Number: JP-JNJFOC-20111003576

PATIENT
  Age: 51 Year
  Sex: Male

DRUGS (4)
  1. LENDORMIN [Concomitant]
     Indication: SLEEP DISORDER
     Route: 048
  2. INVEGA [Suspect]
     Indication: SCHIZOPHRENIA
     Route: 048
     Dates: start: 20110629
  3. INVEGA [Suspect]
     Route: 048
     Dates: start: 20110623, end: 20110628
  4. DOGMATYL [Concomitant]
     Route: 065

REACTIONS (2)
  - RHABDOMYOLYSIS [None]
  - INSOMNIA [None]
